FAERS Safety Report 7815565-7 (Version None)
Quarter: 2011Q4

REPORT INFORMATION
  Report Type: 
  Country: None (occurrence: None)
  Receive Date: 20111014
  Receipt Date: 20111011
  Transmission Date: 20120403
  Serious: Yes (Death)
  Sender: FDA-Public Use
  Company Number: CA-ABBOTT-11P-028-0855827-00

PATIENT
  Sex: Male

DRUGS (2)
  1. LUPRON DEPOT [Suspect]
     Indication: PROSTATE CANCER
     Dates: start: 20050712, end: 20110607
  2. ZOMETA [Concomitant]
     Indication: PALLIATIVE CARE

REACTIONS (2)
  - GENERAL PHYSICAL HEALTH DETERIORATION [None]
  - METASTASES TO BONE [None]
